FAERS Safety Report 23075086 (Version 1)
Quarter: 2023Q4

REPORT INFORMATION
  Report Type: Other
  Country: US (occurrence: US)
  Receive Date: 20231017
  Receipt Date: 20231017
  Transmission Date: 20240110
  Serious: Yes (Other)
  Sender: FDA-Public Use
  Company Number: US-ROCHE-3440338

PATIENT
  Age: 53 Year
  Sex: Female

DRUGS (10)
  1. GANCICLOVIR [Suspect]
     Active Substance: GANCICLOVIR
     Indication: Cytomegalovirus infection
     Route: 065
  2. VALGANCICLOVIR [Suspect]
     Active Substance: VALGANCICLOVIR
     Indication: Cytomegalovirus infection
     Route: 065
  3. ALEMTUZUMAB [Concomitant]
     Active Substance: ALEMTUZUMAB
     Indication: Non-Hodgkin^s lymphoma
  4. MYCOPHENOLATE MOFETIL [Concomitant]
     Active Substance: MYCOPHENOLATE MOFETIL
     Indication: Prophylaxis against graft versus host disease
     Route: 048
  5. ACYCLOVIR [Concomitant]
     Active Substance: ACYCLOVIR
     Indication: Antiviral prophylaxis
     Dosage: TWICE DAILY, BEGINNING ON DAY-7
  6. LETERMOVIR [Concomitant]
     Active Substance: LETERMOVIR
     Indication: Antiviral prophylaxis
     Dosage: ON DAY 7
  7. LETERMOVIR [Concomitant]
     Active Substance: LETERMOVIR
     Dosage: 14 WEEKS
  8. FOSCARNET [Concomitant]
     Active Substance: FOSCARNET
     Dosage: TWICE DAILY 3 WEEKS
  9. FOSCARNET [Concomitant]
     Active Substance: FOSCARNET
     Dosage: TWICE DAILY
  10. TACROLIMUS [Concomitant]
     Active Substance: TACROLIMUS
     Indication: Prophylaxis against graft versus host disease

REACTIONS (2)
  - Neutropenia [Unknown]
  - Off label use [Unknown]
